FAERS Safety Report 6595898-5 (Version None)
Quarter: 2010Q1

REPORT INFORMATION
  Report Type: 
  Country: None (occurrence: None)
  Receive Date: 20100204
  Receipt Date: 20091111
  Transmission Date: 20100710
  Serious: No
  Sender: FDA-Public Use
  Company Number: 2009-09718

PATIENT
  Age: 74 Year
  Sex: Male

DRUGS (3)
  1. RAPAFLO [Suspect]
     Indication: BLADDER DISORDER
     Dosage: 1 TABLET, SINGLE, ORAL
     Route: 048
     Dates: start: 20091101
  2. RAPAFLO [Suspect]
     Indication: PROSTATIC DISORDER
     Dosage: 1 TABLET, SINGLE, ORAL
     Route: 048
     Dates: start: 20091101
  3. FINASTERIDE [Concomitant]

REACTIONS (2)
  - DYSPNOEA [None]
  - NASAL CONGESTION [None]
